FAERS Safety Report 5846334-5 (Version None)
Quarter: 2008Q3

REPORT INFORMATION
  Report Type: 
  Country: None (occurrence: None)
  Receive Date: 20080815
  Receipt Date: 20080805
  Transmission Date: 20090109
  Serious: Yes (Other)
  Sender: FDA-Public Use
  Company Number: CH-JNJFOC-20080704289

PATIENT
  Sex: Female

DRUGS (4)
  1. PREZISTA [Suspect]
     Indication: HIV INFECTION
     Route: 048
  2. EPIVIR [Concomitant]
     Indication: HIV INFECTION
     Route: 048
  3. RALTEGRAVIR [Concomitant]
     Indication: HIV INFECTION
  4. RITONAVIR [Concomitant]
     Indication: HIV INFECTION
     Route: 048

REACTIONS (2)
  - HYPERCHOLESTEROLAEMIA [None]
  - PANCREATITIS [None]
